FAERS Safety Report 17472695 (Version 1)
Quarter: 2020Q1

REPORT INFORMATION
  Report Type: Spontaneous
  Country: US (occurrence: US)
  Receive Date: 20200227
  Receipt Date: 20200227
  Transmission Date: 20200409
  Serious: Yes (Hospitalization)
  Sender: FDA-Public Use
  Company Number: None

PATIENT
  Age: 91 Year
  Sex: Male
  Weight: 80.83 kg

DRUGS (1)
  1. DEGARELIX [Suspect]
     Active Substance: DEGARELIX
     Indication: BLADDER CANCER
     Dosage: ?          OTHER FREQUENCY:MONTHLY;?
     Route: 030
     Dates: start: 20190116

REACTIONS (9)
  - Dysphagia [None]
  - Diabetic hyperosmolar coma [None]
  - Thirst [None]
  - Dysarthria [None]
  - Blood glucose increased [None]
  - Mental status changes [None]
  - Asthenia [None]
  - Muscle spasms [None]
  - Fatigue [None]

NARRATIVE: CASE EVENT DATE: 20190916
